FAERS Safety Report 13407794 (Version 3)
Quarter: 2018Q2

REPORT INFORMATION
  Report Type: Report from Study
  Country: US (occurrence: US)
  Receive Date: 20170406
  Receipt Date: 20180411
  Transmission Date: 20180711
  Serious: Yes (Other)
  Sender: FDA-Public Use
  Company Number: US-BRISTOL-MYERS SQUIBB COMPANY-BMS-2017-026427

PATIENT
  Sex: Female
  Weight: 76.2 kg

DRUGS (1)
  1. ABATACEPT [Suspect]
     Active Substance: ABATACEPT
     Indication: RHEUMATOID ARTHRITIS
     Dosage: UNK
     Route: 042
     Dates: start: 201509, end: 20161215

REACTIONS (7)
  - Halo vision [Unknown]
  - Infusion site pain [Unknown]
  - Nuclear magnetic resonance imaging brain abnormal [Unknown]
  - Nausea [Unknown]
  - Nerve injury [Unknown]
  - Headache [Recovered/Resolved]
  - Sinus disorder [Unknown]
